FAERS Safety Report 14080268 (Version 1)
Quarter: 2017Q4

REPORT INFORMATION
  Report Type: Spontaneous
  Country: US (occurrence: US)
  Receive Date: 20171012
  Receipt Date: 20171012
  Transmission Date: 20180321
  Serious: No
  Sender: FDA-Public Use
  Company Number: US-BAYER-2017-196242

PATIENT
  Sex: Male

DRUGS (1)
  1. MIRALAX [Suspect]
     Active Substance: POLYETHYLENE GLYCOL 3350
     Indication: GASTROINTESTINAL DISORDER
     Dosage: 0.15 DF, QD
     Route: 048

REACTIONS (9)
  - Eructation [Recovered/Resolved]
  - Abdominal distension [Recovered/Resolved]
  - Anxiety [Unknown]
  - Product use issue [Unknown]
  - Pain [Recovered/Resolved]
  - Depression [Unknown]
  - Flatulence [Recovered/Resolved]
  - Flatulence [Recovered/Resolved]
  - Gastrointestinal sounds abnormal [Recovered/Resolved]

NARRATIVE: CASE EVENT DATE: 20171009
